FAERS Safety Report 7557932-5 (Version None)
Quarter: 2011Q2

REPORT INFORMATION
  Report Type: 
  Country: None (occurrence: None)
  Receive Date: 20110620
  Receipt Date: 20110607
  Transmission Date: 20111010
  Serious: Yes (Death)
  Sender: FDA-Public Use
  Company Number: B0724594A

PATIENT
  Sex: Male

DRUGS (11)
  1. NEXIUM [Concomitant]
     Dosage: 20MG PER DAY
     Route: 065
  2. CORDARONE [Concomitant]
     Dosage: 200MG PER DAY
     Route: 065
  3. LASIX [Concomitant]
     Dosage: 40MG PER DAY
     Route: 065
  4. PREDNISONE [Concomitant]
     Dosage: 80MG PER DAY
     Route: 065
  5. ARIXTRA [Suspect]
     Dosage: 7.5MG PER DAY
     Route: 042
     Dates: start: 20110520, end: 20110522
  6. ACETAMINOPHEN [Concomitant]
     Dosage: 7.5MG THREE TIMES PER DAY
     Route: 065
  7. RAMIPRIL [Concomitant]
     Dosage: 5MG TWICE PER DAY
     Route: 065
  8. NICARDIPINE HCL [Concomitant]
     Dosage: 50MG PER DAY
     Route: 065
  9. TOPALGIC ( FRANCE ) [Concomitant]
     Dosage: 100MG TWICE PER DAY
     Route: 065
  10. POTASSIUM CHLORIDE [Concomitant]
     Dosage: 1APP PER DAY
     Route: 048
  11. KEPPRA [Concomitant]
     Dosage: 500MG TWICE PER DAY
     Route: 065

REACTIONS (11)
  - CONVULSION [None]
  - POLYURIA [None]
  - EXTRASYSTOLES [None]
  - SICK SINUS SYNDROME [None]
  - PUPILS UNEQUAL [None]
  - SUBDURAL HAEMATOMA [None]
  - ALTERED STATE OF CONSCIOUSNESS [None]
  - CLONUS [None]
  - OEDEMA PERIPHERAL [None]
  - COMA [None]
  - HYPERTONIA [None]
